FAERS Safety Report 5563147-2 (Version None)
Quarter: 2007Q4

REPORT INFORMATION
  Report Type: 
  Country: None (occurrence: None)
  Receive Date: 20071217
  Receipt Date: 20071207
  Transmission Date: 20080405
  Serious: Yes (Other)
  Sender: FDA-Public Use
  Company Number: B0497667A

PATIENT
  Age: 45 Year
  Sex: Female

DRUGS (3)
  1. VENTOLIN [Suspect]
     Route: 055
  2. FLIXOTIDE DISKUS [Concomitant]
     Indication: ASTHMA
     Dosage: 1PUFF PER DAY
     Route: 055
     Dates: start: 20040101
  3. FORADIL [Concomitant]
     Indication: ASTHMA
     Dosage: 1PUFF IN THE MORNING
     Route: 055
     Dates: start: 20071001

REACTIONS (3)
  - ASTHMATIC CRISIS [None]
  - BRONCHIAL IRRITATION [None]
  - PHARMACEUTICAL PRODUCT COMPLAINT [None]
